FAERS Safety Report 17034977 (Version 4)
Quarter: 2021Q2

REPORT INFORMATION
  Report Type: Report from Study
  Country: FR (occurrence: FR)
  Receive Date: 20191115
  Receipt Date: 20210524
  Transmission Date: 20210716
  Serious: Yes (Hospitalization)
  Sender: FDA-Public Use
  Company Number: FR-ROCHE-2292922

PATIENT
  Age: 83 Year
  Sex: Female
  Weight: 67 kg

DRUGS (17)
  1. MOVICOL [Concomitant]
     Active Substance: POLYETHYLENE GLYCOL 3350\POTASSIUM CHLORIDE\SODIUM BICARBONATE\SODIUM CHLORIDE
     Indication: CONSTIPATION
     Dosage: DOSE: 1 OTHER
     Route: 048
     Dates: start: 201904, end: 201906
  2. LOPERAMIDE [Concomitant]
     Active Substance: LOPERAMIDE
     Dosage: PREVENTION DIARRHEA
     Route: 048
     Dates: start: 20190314
  3. LOVENOX [Concomitant]
     Active Substance: ENOXAPARIN SODIUM
     Indication: THROMBOSIS PROPHYLAXIS
     Route: 058
     Dates: start: 201905, end: 201906
  4. EUPANTOL [Concomitant]
     Active Substance: PANTOPRAZOLE SODIUM
     Indication: OESOPHAGEAL STENOSIS
     Route: 048
  5. MYCOSTATINE [Concomitant]
     Active Substance: NYSTATIN
     Indication: STOMATITIS
     Dosage: DOSE: 1 OTHER
     Route: 048
     Dates: start: 20190314, end: 20190329
  6. SODIUM BICARBONATE. [Concomitant]
     Active Substance: SODIUM BICARBONATE
     Indication: STOMATITIS
     Dosage: DOSE: 1 OTHER
     Route: 048
     Dates: start: 20190314, end: 201904
  7. METOCLOPRAMIDE. [Concomitant]
     Active Substance: METOCLOPRAMIDE
     Indication: PROPHYLAXIS OF NAUSEA AND VOMITING
     Route: 048
     Dates: start: 201905
  8. INEXIUM [Concomitant]
     Active Substance: ESOMEPRAZOLE
     Indication: OESOPHAGEAL STENOSIS
     Route: 048
     Dates: start: 201905, end: 201906
  9. CACIT D3 [Concomitant]
     Active Substance: CALCIUM\CHOLECALCIFEROL
     Indication: OSTEOPOROSIS
     Route: 048
  10. FUNGIZONE [Concomitant]
     Active Substance: AMPHOTERICIN B
     Indication: STOMATITIS
     Dosage: DOSE: 1 OTHER
     Route: 048
     Dates: start: 20190329, end: 201904
  11. SERESTA [Concomitant]
     Active Substance: OXAZEPAM
     Indication: PROPHYLAXIS
     Route: 048
     Dates: start: 201905
  12. LEVOTHYROX [Concomitant]
     Active Substance: LEVOTHYROXINE
     Indication: HYPOTHYROIDISM
     Route: 048
  13. DOLIPRANE [Concomitant]
     Active Substance: ACETAMINOPHEN
     Indication: PAIN PROPHYLAXIS
     Route: 048
  14. ATARAX [Concomitant]
     Active Substance: HYDROXYZINE HYDROCHLORIDE
     Indication: PROPHYLAXIS
     Route: 048
     Dates: start: 20190314, end: 201904
  15. ENTRECTINIB [Suspect]
     Active Substance: ENTRECTINIB
     Indication: NON-SMALL CELL LUNG CANCER
     Dosage: ON 26/MAR/2019, SHE RECEIVED THE MOST RECENT DOSE OF ENTRECTINIB PRIOR TO THE ADVERSE EVENT ONSET.?O
     Route: 048
     Dates: start: 20190314
  16. EDUCTYL [Concomitant]
     Active Substance: POTASSIUM BITARTRATE\SODIUM BICARBONATE
     Indication: CONSTIPATION
     Dates: start: 201906
  17. LOPERAMIDE [Concomitant]
     Active Substance: LOPERAMIDE
     Dates: start: 201906

REACTIONS (3)
  - Cerebellar syndrome [Recovered/Resolved]
  - Bronchitis [Recovered/Resolved]
  - Cardiac failure [Recovered/Resolved]

NARRATIVE: CASE EVENT DATE: 20190326
